FAERS Safety Report 5211891-9 (Version None)
Quarter: 2007Q1

REPORT INFORMATION
  Report Type: 
  Country: None (occurrence: None)
  Receive Date: 20070116
  Receipt Date: 20070116
  Transmission Date: 20070707
  Serious: Yes (Hospitalization)
  Sender: FDA-Public Use
  Company Number: None

PATIENT
  Age: 21 Year
  Sex: Male

DRUGS (2)
  1. ASPARAGINASE [Suspect]
  2. FILGRASTIM [Suspect]

REACTIONS (2)
  - MYALGIA [None]
  - PYREXIA [None]
